FAERS Safety Report 15611600 (Version 2)
Quarter: 2018Q4

REPORT INFORMATION
  Report Type: Spontaneous
  Country: GB (occurrence: GB)
  Receive Date: 20181113
  Receipt Date: 20181121
  Transmission Date: 20190205
  Serious: Yes (Other)
  Sender: FDA-Public Use
  Company Number: GB-TORRENT-00003876

PATIENT
  Age: 40 Year
  Sex: Female

DRUGS (5)
  1. ARIPIPRAZOLE. [Concomitant]
     Active Substance: ARIPIPRAZOLE
     Indication: SCHIZOAFFECTIVE DISORDER
     Dosage: UNKNOWN
     Dates: end: 201403
  2. OMEPRAZOLE. [Concomitant]
     Active Substance: OMEPRAZOLE
     Indication: PRODUCT USED FOR UNKNOWN INDICATION
     Dosage: UNKNOWN
  3. AMITRIPTYLINE [Suspect]
     Active Substance: AMITRIPTYLINE
     Indication: PRODUCT USED FOR UNKNOWN INDICATION
     Dosage: UNKNOWN
  4. QUETIAPINE. [Interacting]
     Active Substance: QUETIAPINE
     Indication: SCHIZOAFFECTIVE DISORDER
     Dosage: PATIENT TOOK INCREASING DOSE OF QUETIAPINE
     Dates: start: 201403
  5. RAMIPRIL. [Concomitant]
     Active Substance: RAMIPRIL
     Indication: PRODUCT USED FOR UNKNOWN INDICATION
     Dosage: UNKNOWN

REACTIONS (2)
  - Restless legs syndrome [Recovered/Resolved]
  - Drug interaction [Unknown]
